FAERS Safety Report 7325654-1 (Version None)
Quarter: 2011Q1

REPORT INFORMATION
  Report Type: 
  Country: None (occurrence: None)
  Receive Date: 20110302
  Receipt Date: 20110224
  Transmission Date: 20110831
  Serious: Yes (Hospitalization, Other)
  Sender: FDA-Public Use
  Company Number: IT-PFIZER INC-2011023817

PATIENT
  Age: 62 Year
  Sex: Male
  Weight: 93 kg

DRUGS (1)
  1. RAPAMUNE [Suspect]
     Indication: PROPHYLAXIS AGAINST TRANSPLANT REJECTION
     Dosage: 1 MG, ONCE
     Route: 048
     Dates: start: 20080128

REACTIONS (2)
  - DYSPEPSIA [None]
  - CYSTITIS [None]
